FAERS Safety Report 9055794 (Version 1)
Quarter: 2013Q1

REPORT INFORMATION
  Report Type: Spontaneous
  Country: JP (occurrence: JP)
  Receive Date: 20130206
  Receipt Date: 20130206
  Transmission Date: 20140127
  Serious: Yes (Death)
  Sender: FDA-Public Use
  Company Number: JP-009507513-1302JPN000749

PATIENT
  Age: 91 Year
  Sex: Male

DRUGS (16)
  1. ZOLINZA CAPSULES 100MG [Suspect]
     Indication: ANAPLASTIC LARGE CELL LYMPHOMA T- AND NULL-CELL TYPES
     Dosage: 300 MG, QD
     Route: 048
     Dates: start: 20120924, end: 20121005
  2. ZOLINZA CAPSULES 100MG [Suspect]
     Dosage: 300 UNK, UNK
     Route: 048
     Dates: start: 20121009, end: 20121010
  3. ISCOTIN [Concomitant]
     Indication: LATENT TUBERCULOSIS
     Dosage: 200 MG, QD
     Route: 048
     Dates: end: 20121016
  4. CEFZON [Concomitant]
     Indication: PROPHYLAXIS
     Dosage: 100 MG, TID
     Route: 048
     Dates: end: 20120928
  5. OMEPRAZOLE [Concomitant]
     Indication: PROPHYLAXIS
     Dosage: 10 MG, QD
     Route: 048
  6. CELECOX [Concomitant]
     Indication: PROPHYLAXIS
     Dosage: 100 MG, BID
     Route: 048
     Dates: end: 20120928
  7. PYDOXAL [Concomitant]
     Indication: PROPHYLAXIS
     Dosage: 10 MG, TID
     Route: 048
     Dates: end: 20121016
  8. OXYCONTIN [Concomitant]
     Indication: ANAPLASTIC LARGE CELL LYMPHOMA T- AND NULL-CELL TYPES
     Dosage: 10 MG, BID
     Route: 048
     Dates: end: 20120925
  9. OXYCONTIN [Concomitant]
     Dosage: 15 MG, BID
     Dates: start: 20120926, end: 20120928
  10. GEBEN [Concomitant]
     Indication: ANAPLASTIC LARGE CELL LYMPHOMA T- AND NULL-CELL TYPES
     Dosage: PROPER QUANTITY. PROPERLY
     Route: 065
  11. LOXONIN [Concomitant]
     Indication: ANAPLASTIC LARGE CELL LYMPHOMA T- AND NULL-CELL TYPES
     Dosage: 60 MG, BID
     Route: 048
     Dates: start: 20120928
  12. MS CONTIN [Concomitant]
     Indication: ANAPLASTIC LARGE CELL LYMPHOMA T- AND NULL-CELL TYPES
     Dosage: 20MG 30MG IN EVENING IN MORNING
     Route: 048
     Dates: start: 20120928
  13. LYRICA [Concomitant]
     Indication: ANAPLASTIC LARGE CELL LYMPHOMA T- AND NULL-CELL TYPES
     Dosage: 100 MG, BID
     Route: 048
     Dates: start: 20120929
  14. NEUROTROPIN [Concomitant]
     Indication: ANAPLASTIC LARGE CELL LYMPHOMA T- AND NULL-CELL TYPES
     Dosage: 2 DF, BID
     Route: 048
     Dates: start: 20121002
  15. NORITREN [Concomitant]
     Indication: ANAPLASTIC LARGE CELL LYMPHOMA T- AND NULL-CELL TYPES
     Dosage: 10 MG, QD
     Route: 048
     Dates: start: 20121005
  16. NAUZELIN [Concomitant]
     Indication: NAUSEA
     Dosage: 10 MG, TID
     Route: 048
     Dates: start: 20120928

REACTIONS (8)
  - Death [Fatal]
  - Dizziness [Recovering/Resolving]
  - Nausea [Unknown]
  - Platelet count decreased [Unknown]
  - Pollakiuria [Unknown]
  - Oedema peripheral [Not Recovered/Not Resolved]
  - Renal disorder [Not Recovered/Not Resolved]
  - Drug ineffective [Unknown]
